FAERS Safety Report 20227912 (Version 7)
Quarter: 2022Q1

REPORT INFORMATION
  Report Type: Report from Study
  Country: US (occurrence: US)
  Receive Date: 20211224
  Receipt Date: 20220326
  Transmission Date: 20220423
  Serious: Yes (Hospitalization)
  Sender: FDA-Public Use
  Company Number: US-NOVARTISTESTPH-NVSC2021US295275

PATIENT
  Sex: Female
  Weight: 92.98 kg

DRUGS (4)
  1. TREPROSTINIL [Suspect]
     Active Substance: TREPROSTINIL
     Indication: Pulmonary arterial hypertension
     Dosage: 15 NG/KG/MIN, CONT
     Route: 042
     Dates: start: 20211209
  2. TREPROSTINIL [Suspect]
     Active Substance: TREPROSTINIL
     Dosage: 20 NG/KG/MIN, CONT
     Route: 042
  3. TREPROSTINIL [Suspect]
     Active Substance: TREPROSTINIL
     Dosage: 31 NG/KG/MIN, CONT
     Route: 042
  4. TREPROSTINIL [Suspect]
     Active Substance: TREPROSTINIL
     Dosage: 36 NG/KG/MIN, CONT
     Route: 042

REACTIONS (11)
  - COVID-19 [Unknown]
  - Dyspnoea [Unknown]
  - Oedema peripheral [Unknown]
  - Chest pain [Unknown]
  - Heart rate increased [Unknown]
  - Headache [Unknown]
  - Vomiting [Unknown]
  - Orthostatic hypotension [Unknown]
  - Pain in jaw [Unknown]
  - Dizziness [Unknown]
  - Incision site haemorrhage [Unknown]
